FAERS Safety Report 9402937 (Version 1)
Quarter: 2013Q3

REPORT INFORMATION
  Report Type: Spontaneous
  Country: US (occurrence: US)
  Receive Date: 20130716
  Receipt Date: 20130716
  Transmission Date: 20140515
  Serious: Yes (Other)
  Sender: FDA-Public Use
  Company Number: US-BAYER-2013-083227

PATIENT
  Age: 78 Year
  Sex: Female

DRUGS (2)
  1. EOVIST [Suspect]
     Indication: NUCLEAR MAGNETIC RESONANCE IMAGING
     Dosage: 8 ML, ONCE
     Route: 042
     Dates: start: 20130622, end: 20130622
  2. EOVIST [Suspect]
     Indication: HEPATIC LESION

REACTIONS (1)
  - Dyspnoea [None]
